FAERS Safety Report 5233424-3 (Version None)
Quarter: 2007Q1

REPORT INFORMATION
  Report Type: 
  Country: None (occurrence: None)
  Receive Date: 20070208
  Receipt Date: 20070129
  Transmission Date: 20070707
  Serious: Yes (Hospitalization, Other)
  Sender: FDA-Public Use
  Company Number: US-JNJFOC-20070107421

PATIENT
  Sex: Female
  Weight: 63.5 kg

DRUGS (8)
  1. LEUSTATIN [Suspect]
     Indication: HAIRY CELL LEUKAEMIA
     Route: 065
  2. MICARDIS [Concomitant]
     Indication: HYPERTENSION
  3. ATENOLOL [Concomitant]
     Indication: HYPERTENSION
  4. PRILOSEC [Concomitant]
     Indication: GASTROOESOPHAGEAL REFLUX DISEASE
  5. ZOLOFT [Concomitant]
     Indication: ANXIETY
  6. SINGULAIR [Concomitant]
     Indication: ASTHMA
  7. CLARITIN [Concomitant]
     Indication: MULTIPLE ALLERGIES
  8. SYNTHROID [Concomitant]
     Indication: HYPOTHYROIDISM

REACTIONS (6)
  - BALANCE DISORDER [None]
  - BRAIN MASS [None]
  - DISTURBANCE IN ATTENTION [None]
  - GRIP STRENGTH DECREASED [None]
  - NERVE INJURY [None]
  - RESTLESS LEGS SYNDROME [None]
